FAERS Safety Report 4673529-9 (Version None)
Quarter: 2005Q2

REPORT INFORMATION
  Report Type: 
  Country: None (occurrence: None)
  Receive Date: 20050523
  Receipt Date: 20050511
  Transmission Date: 20051028
  Serious: Yes (Disabling)
  Sender: FDA-Public Use
  Company Number: 200111542BWH

PATIENT
  Age: 40 Year
  Sex: Female

DRUGS (9)
  1. AVELOX [Suspect]
     Indication: ASTHMA
     Dosage: 400 MG, QD, ORAL
     Route: 048
     Dates: start: 20010523, end: 20010528
  2. AVELOX [Suspect]
     Indication: LOWER RESPIRATORY TRACT INFECTION
     Dosage: 400 MG, QD, ORAL
     Route: 048
     Dates: start: 20010523, end: 20010528
  3. AVELOX [Suspect]
     Indication: SINUSITIS
     Dosage: 400 MG, QD, ORAL
     Route: 048
     Dates: start: 20010523, end: 20010528
  4. COUGH SUPPRESSION [Concomitant]
  5. INHALER [Concomitant]
  6. ZITHROMAX [Concomitant]
  7. PROVENTIL [Concomitant]
  8. PREDNISONE TAB [Concomitant]
  9. HUMIBID DM [Concomitant]

REACTIONS (8)
  - ADVERSE EVENT [None]
  - AGEUSIA [None]
  - ANOSMIA [None]
  - DYSPNOEA [None]
  - ENDOCRINE DISORDER [None]
  - HYPOTHYROIDISM [None]
  - PHARYNGEAL ERYTHEMA [None]
  - WHEEZING [None]
